FAERS Safety Report 8676234 (Version 95)
Quarter: 2023Q2

REPORT INFORMATION
  Report Type: Spontaneous
  Country: GB (occurrence: GB)
  Receive Date: 20120720
  Receipt Date: 20230606
  Transmission Date: 20230722
  Serious: Yes (Hospitalization, Congenital Anomaly, Other)
  Sender: FDA-Public Use
  Company Number: GB-MSD-1007GBR00039B1

PATIENT
  Age: 1 Day
  Sex: Male
  Weight: 3.1 kg

DRUGS (71)
  1. ISENTRESS [Suspect]
     Active Substance: RALTEGRAVIR POTASSIUM
     Dosage: 3200 MILLIGRAM, QD (800 MILLIGRAM, QID)
     Route: 064
     Dates: start: 20100610
  2. ISENTRESS [Suspect]
     Active Substance: RALTEGRAVIR POTASSIUM
     Dosage: 800 MILLIGRAM, QID (3200 MILLIGRAM DAILY; 800 MILLIGRAM, QD))
     Route: 064
     Dates: start: 20100610
  3. ISENTRESS [Suspect]
     Active Substance: RALTEGRAVIR POTASSIUM
     Dosage: FORMULATION: TABLET DOSE 1.
     Route: 064
  4. ISENTRESS [Suspect]
     Active Substance: RALTEGRAVIR POTASSIUM
     Dosage: 3200 MILLIGRAM, QD (800 MILLIGRAM, QID)
     Route: 064
     Dates: start: 20100610
  5. RALTEGRAVIR POTASSIUM [Suspect]
     Active Substance: RALTEGRAVIR POTASSIUM
     Indication: HIV infection
     Dosage: 800 MILLIGRAM QD (PATIENT NOT TAKING MEDICATION AT CONECPTION)
     Route: 064
     Dates: start: 20100610
  6. RALTEGRAVIR POTASSIUM [Suspect]
     Active Substance: RALTEGRAVIR POTASSIUM
     Indication: Foetal exposure during pregnancy
     Dosage: 1 DOSAGE FORM, QD (1 DF, QD )
     Route: 064
     Dates: start: 20100610
  7. LAMIVUDINE [Suspect]
     Active Substance: LAMIVUDINE
     Indication: HIV infection
     Dosage: 300 MG, QD
     Route: 064
     Dates: start: 20090101, end: 20100610
  8. LAMIVUDINE [Suspect]
     Active Substance: LAMIVUDINE
     Indication: Antiretroviral therapy
     Dosage: 300 MG, QD
     Route: 064
     Dates: start: 20100610
  9. LAMIVUDINE [Suspect]
     Active Substance: LAMIVUDINE
     Indication: Antiviral treatment
     Dosage: 150 MG
     Route: 064
     Dates: start: 20100601
  10. LAMIVUDINE [Suspect]
     Active Substance: LAMIVUDINE
     Dosage: START DATE: MONTH UNKNOWN
     Route: 064
  11. LAMIVUDINE [Suspect]
     Active Substance: LAMIVUDINE
     Dosage: 150 MILLIGRAM, QD (DOSE: START DATE: MONTH UNKNOWN)
     Route: 064
  12. LAMIVUDINE [Suspect]
     Active Substance: LAMIVUDINE
     Dosage: 300 MG, QD
     Route: 064
     Dates: start: 20100610, end: 20100610
  13. LAMIVUDINE [Suspect]
     Active Substance: LAMIVUDINE
     Dosage: DOSE 1. START DATE: MONTH UNKNOWN
     Route: 064
     Dates: start: 20100610, end: 20100610
  14. LAMIVUDINE [Suspect]
     Active Substance: LAMIVUDINE
     Dosage: UNK
     Route: 064
     Dates: start: 20090922, end: 20100610
  15. LAMIVUDINE [Suspect]
     Active Substance: LAMIVUDINE
     Dosage: MOTHER DOSE ( DOSE# 1. START DATE: MONTH UNKNOWN)
     Route: 064
     Dates: start: 20100610, end: 20100610
  16. LAMIVUDINE [Suspect]
     Active Substance: LAMIVUDINE
     Dosage: 300 MILLIGRAM, QD
     Route: 064
  17. LAMIVUDINE [Suspect]
     Active Substance: LAMIVUDINE
     Dosage: MOTHER DOSE: UNK; ;
     Route: 064
     Dates: start: 20100610
  18. LAMIVUDINE [Suspect]
     Active Substance: LAMIVUDINE
     Dosage: 150 MILLIGRAM, QD
     Route: 064
  19. LAMIVUDINE [Suspect]
     Active Substance: LAMIVUDINE
     Dosage: 300 MILLIGRAM, QD
     Route: 064
  20. LAMIVUDINE [Suspect]
     Active Substance: LAMIVUDINE
     Dosage: 150 MILLIGRAM, QD
     Route: 064
  21. LAMIVUDINE [Suspect]
     Active Substance: LAMIVUDINE
     Dosage: 300 MILLIGRAM, QD
     Route: 064
  22. LAMIVUDINE [Suspect]
     Active Substance: LAMIVUDINE
     Dosage: 150 MILLIGRAM, QD
     Route: 064
  23. LAMIVUDINE [Suspect]
     Active Substance: LAMIVUDINE
     Dosage: 150 MILLIGRAM, QD
     Route: 064
  24. LAMIVUDINE [Suspect]
     Active Substance: LAMIVUDINE
     Dosage: 150 MG
     Route: 064
  25. TENOFOVIR [Suspect]
     Active Substance: TENOFOVIR
     Indication: HIV infection
     Dosage: 300 MILLIGRAM, QD; (MOTHER DOSE: 300 MG QD)
     Route: 064
     Dates: start: 20100610, end: 20100610
  26. TENOFOVIR [Suspect]
     Active Substance: TENOFOVIR
     Indication: Antiretroviral therapy
     Dosage: 300 MILLIGRAM, QD; (MOTHER DOSE: 300 MG QD)
     Route: 064
     Dates: start: 20100610, end: 20100629
  27. ZIDOVUDINE [Suspect]
     Active Substance: ZIDOVUDINE
     Indication: Antiretroviral therapy
     Dosage: 800 MG, QD
     Route: 064
     Dates: start: 20100610
  28. ZIDOVUDINE [Suspect]
     Active Substance: ZIDOVUDINE
     Indication: HIV infection
     Dosage: 600 MG, QD
     Route: 064
     Dates: start: 20090101, end: 20100610
  29. ZIDOVUDINE [Suspect]
     Active Substance: ZIDOVUDINE
     Dosage: 600 MG, QD (MOTHER DOSE)
     Route: 064
     Dates: start: 20090110, end: 20100610
  30. ZIDOVUDINE [Suspect]
     Active Substance: ZIDOVUDINE
     Dosage: UNK
     Dates: start: 20090922, end: 20100610
  31. ZIDOVUDINE [Suspect]
     Active Substance: ZIDOVUDINE
     Dosage: UNK
     Dates: start: 20091110, end: 20100610
  32. ZIDOVUDINE [Suspect]
     Active Substance: ZIDOVUDINE
     Dosage: UNK
  33. ZIDOVUDINE [Suspect]
     Active Substance: ZIDOVUDINE
  34. ZIDOVUDINE [Suspect]
     Active Substance: ZIDOVUDINE
  35. ZIDOVUDINE [Suspect]
     Active Substance: ZIDOVUDINE
  36. ZIDOVUDINE [Suspect]
     Active Substance: ZIDOVUDINE
  37. ZIDOVUDINE [Suspect]
     Active Substance: ZIDOVUDINE
  38. ZIDOVUDINE [Suspect]
     Active Substance: ZIDOVUDINE
  39. VIREAD [Suspect]
     Active Substance: TENOFOVIR DISOPROXIL FUMARATE
     Indication: HIV infection
     Dosage: UNK
     Route: 064
     Dates: start: 20100610, end: 20100629
  40. VIREAD [Suspect]
     Active Substance: TENOFOVIR DISOPROXIL FUMARATE
     Indication: Foetal exposure during pregnancy
     Dosage: MOTHER DOSE: UNK;
     Route: 064
     Dates: start: 20100610
  41. VIREAD [Suspect]
     Active Substance: TENOFOVIR DISOPROXIL FUMARATE
     Indication: Antiretroviral therapy
  42. TENOFOVIR DISOPROXIL FUMARATE [Suspect]
     Active Substance: TENOFOVIR DISOPROXIL FUMARATE
     Indication: HIV infection
     Dosage: UNK; ;
     Route: 064
     Dates: start: 20100610, end: 20100629
  43. RITONAVIR [Suspect]
     Active Substance: RITONAVIR
     Indication: Foetal exposure during pregnancy
     Dosage: UNK
     Route: 064
     Dates: start: 20100629, end: 20100629
  44. RITONAVIR [Suspect]
     Active Substance: RITONAVIR
     Indication: Foetal exposure during pregnancy
     Dosage: UNK
     Route: 064
     Dates: start: 20100710
  45. KALETRA [Suspect]
     Active Substance: LOPINAVIR\RITONAVIR
     Indication: Product used for unknown indication
     Dosage: UNK
     Route: 064
  46. KALETRA [Suspect]
     Active Substance: LOPINAVIR\RITONAVIR
     Indication: Antiretroviral therapy
     Dosage: UNK
     Route: 064
     Dates: start: 20200610
  47. KALETRA [Suspect]
     Active Substance: LOPINAVIR\RITONAVIR
     Indication: HIV infection
     Dosage: MATERNAL DOSE: UNKNOWN
     Route: 064
     Dates: start: 20100610
  48. KALETRA [Suspect]
     Active Substance: LOPINAVIR\RITONAVIR
     Indication: Foetal exposure during pregnancy
     Dosage: MOTHER DOSE: UNK
     Route: 064
     Dates: start: 20100710
  49. KALETRA [Suspect]
     Active Substance: LOPINAVIR\RITONAVIR
     Indication: Product used for unknown indication
  50. LOPINAVIR AND RITONAVIR [Suspect]
     Active Substance: LOPINAVIR\RITONAVIR
     Indication: HIV infection
     Dosage: 300 MILLIGRAM, QD
     Route: 064
     Dates: start: 20100610
  51. LOPINAVIR AND RITONAVIR [Suspect]
     Active Substance: LOPINAVIR\RITONAVIR
     Indication: Foetal exposure during pregnancy
     Dosage: UNK
     Route: 064
     Dates: start: 20100610, end: 20100629
  52. VIRAMUNE [Suspect]
     Active Substance: NEVIRAPINE
     Indication: HIV infection
     Dosage: 400 MILLIGRAM, QD, DOSE 1
     Route: 064
     Dates: start: 20100610
  53. VIRAMUNE [Suspect]
     Active Substance: NEVIRAPINE
     Indication: Antiretroviral therapy
     Dosage: (MATERNAL DOSE: 400 MG, QD)
     Route: 064
     Dates: start: 20090101, end: 20100610
  54. VIRAMUNE [Suspect]
     Active Substance: NEVIRAPINE
     Indication: Foetal exposure during pregnancy
     Dosage: 400 MG, QD
     Route: 064
     Dates: start: 20100610
  55. NEVIRAPINE [Suspect]
     Active Substance: NEVIRAPINE
     Indication: HIV infection
     Dosage: 400 MILLIGRAM, QD MOTHER DOSE: 400 MG, QD
     Route: 064
     Dates: start: 20090101, end: 20100610
  56. NEVIRAPINE [Suspect]
     Active Substance: NEVIRAPINE
     Indication: Antiretroviral therapy
     Dosage: 400 MILLIGRAM, QD
     Route: 064
     Dates: start: 20090101, end: 20100610
  57. NEVIRAPINE [Suspect]
     Active Substance: NEVIRAPINE
     Indication: Foetal exposure during pregnancy
     Dosage: 400 MILLIGRAM, QD MOTHER DOSE: UNK
     Route: 064
     Dates: start: 20100610
  58. NEVIRAPINE [Suspect]
     Active Substance: NEVIRAPINE
     Dosage: 400 MILLIGRAM, QD
     Route: 064
     Dates: start: 20090101, end: 20100610
  59. NEVIRAPINE [Suspect]
     Active Substance: NEVIRAPINE
     Dosage: 400 MG, QD
     Route: 064
     Dates: start: 20100610
  60. NEVIRAPINE [Suspect]
     Active Substance: NEVIRAPINE
     Dosage: UNK
     Route: 064
     Dates: start: 20090922, end: 20100610
  61. NEVIRAPINE [Suspect]
     Active Substance: NEVIRAPINE
  62. NEVIRAPINE [Suspect]
     Active Substance: NEVIRAPINE
  63. NEVIRAPINE [Suspect]
     Active Substance: NEVIRAPINE
  64. NEVIRAPINE [Suspect]
     Active Substance: NEVIRAPINE
  65. NEVIRAPINE [Suspect]
     Active Substance: NEVIRAPINE
  66. NEVIRAPINE [Suspect]
     Active Substance: NEVIRAPINE
  67. NEVIRAPINE [Suspect]
     Active Substance: NEVIRAPINE
  68. NEVIRAPINE [Suspect]
     Active Substance: NEVIRAPINE
  69. LOPINAVIR\RITONAVIR [Suspect]
     Active Substance: LOPINAVIR\RITONAVIR
     Indication: Antiretroviral therapy
     Dosage: UNK
     Route: 064
     Dates: start: 20100610, end: 20100629
  70. LOPINAVIR\RITONAVIR [Suspect]
     Active Substance: LOPINAVIR\RITONAVIR
     Indication: HIV infection
     Dosage: UNK
     Route: 064
     Dates: start: 20100710
  71. LOPINAVIR\RITONAVIR [Suspect]
     Active Substance: LOPINAVIR\RITONAVIR
     Indication: Foetal exposure during pregnancy
     Dosage: UNK
     Route: 064
     Dates: start: 20100610, end: 20100629

REACTIONS (2)
  - Foetal exposure during pregnancy [Recovered/Resolved]
  - Volvulus [Not Recovered/Not Resolved]

NARRATIVE: CASE EVENT DATE: 20100610
